FAERS Safety Report 10190551 (Version 2)
Quarter: 2014Q2

REPORT INFORMATION
  Report Type: Spontaneous
  Country: US (occurrence: US)
  Receive Date: 20140523
  Receipt Date: 20140612
  Transmission Date: 20141212
  Serious: No
  Sender: FDA-Public Use
  Company Number: US-B.I. PHARMACEUTICALS,INC./RIDGEFIELD-2014-BI-21004BP

PATIENT
  Age: 12 Year
  Sex: Male

DRUGS (3)
  1. CATAPRES TTS [Suspect]
     Indication: TOURETTE^S DISORDER
     Dosage: STRENGTH: 5.0 MG (0.2 MG / DAY)
     Route: 061
     Dates: start: 201404
  2. SERTRALINE [Concomitant]
     Route: 048
  3. CLONIDINE [Concomitant]
     Route: 048

REACTIONS (4)
  - Urticaria [Not Recovered/Not Resolved]
  - Application site erythema [Unknown]
  - Off label use [Unknown]
  - Off label use [Unknown]
